FAERS Safety Report 22163462 (Version 1)
Quarter: 2023Q2

REPORT INFORMATION
  Report Type: Spontaneous
  Country: PL (occurrence: PL)
  Receive Date: 20230401
  Receipt Date: 20230401
  Transmission Date: 20230721
  Serious: Yes (Hospitalization, Other)
  Sender: FDA-Public Use
  Company Number: PL-MLMSERVICE-20230321-4124839-1

PATIENT
  Age: 14 Year
  Sex: Female

DRUGS (5)
  1. METHOTREXATE [Suspect]
     Active Substance: METHOTREXATE
     Indication: Scleroderma
  2. PREDNISONE [Concomitant]
     Active Substance: PREDNISONE
     Indication: Scleroderma
  3. EUTHYROX [Concomitant]
     Active Substance: LEVOTHYROXINE SODIUM
     Indication: Autoimmune thyroiditis
  4. EUTHYROX [Concomitant]
     Active Substance: LEVOTHYROXINE SODIUM
     Indication: Autoimmune thyroiditis
     Dosage: REDUCED
  5. EUTHYROX [Concomitant]
     Active Substance: LEVOTHYROXINE SODIUM
     Indication: Autoimmune thyroiditis
     Dosage: REDUCED

REACTIONS (9)
  - Depression [Unknown]
  - Abdominal pain [Unknown]
  - Costochondritis [Unknown]
  - Dehydration [Unknown]
  - Infectious mononucleosis [Unknown]
  - Visual impairment [Unknown]
  - Gastroenteritis [Unknown]
  - Dizziness [Unknown]
  - Off label use [Unknown]
